FAERS Safety Report 7113182-8 (Version None)
Quarter: 2010Q4

REPORT INFORMATION
  Report Type: 
  Country: None (occurrence: None)
  Receive Date: 20101119
  Receipt Date: 20091016
  Transmission Date: 20110411
  Serious: No
  Sender: FDA-Public Use
  Company Number: A0812197A

PATIENT
  Age: 32 Year
  Sex: Female

DRUGS (2)
  1. BUPROPION HYDROCHLORIDE [Suspect]
     Indication: DEPRESSION
     Dosage: 150MG TWICE PER DAY
     Route: 048
  2. BIRTH CONTROL PILL [Concomitant]

REACTIONS (4)
  - PRURITUS [None]
  - RASH [None]
  - RASH MACULAR [None]
  - URTICARIA [None]
